FAERS Safety Report 6329971-3 (Version None)
Quarter: 2009Q3

REPORT INFORMATION
  Report Type: 
  Country: None (occurrence: None)
  Receive Date: 20090825
  Receipt Date: 20090810
  Transmission Date: 20100115
  Serious: Yes (Hospitalization)
  Sender: FDA-Public Use
  Company Number: 09-001341

PATIENT
  Age: 60 Year
  Sex: Female

DRUGS (3)
  1. DURICEF [Suspect]
     Indication: BRONCHITIS
     Dosage: 2G, QD, ORAL
     Route: 048
     Dates: start: 20081125, end: 20081203
  2. CELESTENE     /00008501/ (BETAMETHASONE) [Concomitant]
  3. TOPLEXIL  (GUAIFENESIN, OXOMEMAZINE, PARACETAMOL, SODIUM BENZOATE) [Concomitant]

REACTIONS (2)
  - ACUTE GENERALISED EXANTHEMATOUS PUSTULOSIS [None]
  - SKIN TEST POSITIVE [None]
